FAERS Safety Report 16181940 (Version 1)
Quarter: 2019Q2

REPORT INFORMATION
  Report Type: Spontaneous
  Country: CH (occurrence: CH)
  Receive Date: 20190410
  Receipt Date: 20190410
  Transmission Date: 20190711
  Serious: Yes (Other)
  Sender: FDA-Public Use
  Company Number: CH-FRESENIUS KABI-FK201903863

PATIENT
  Age: 37 Year
  Sex: Female

DRUGS (1)
  1. DAPTOMYCIN (MANUFACTURER UNKNOWN) [Suspect]
     Active Substance: DAPTOMYCIN
     Indication: STAPHYLOCOCCAL BACTERAEMIA
     Dosage: 9 TO 12 MG/KG
     Route: 065

REACTIONS (1)
  - Toxicity to various agents [Recovering/Resolving]
